FAERS Safety Report 9187128 (Version 2)
Quarter: 2013Q2

REPORT INFORMATION
  Report Type: Report from Study
  Country: US (occurrence: US)
  Receive Date: 20130325
  Receipt Date: 20130520
  Transmission Date: 20140414
  Serious: Yes (Hospitalization)
  Sender: FDA-Public Use
  Company Number: US-JNJFOC-20130309413

PATIENT
  Age: 39 Year
  Sex: Male
  Weight: 62.3 kg

DRUGS (2)
  1. PALIPERIDONE PALMITATE [Suspect]
     Indication: PSYCHOTIC DISORDER
     Route: 030
     Dates: start: 20130311, end: 20130311
  2. PALIPERIDONE PALMITATE [Suspect]
     Indication: PSYCHOTIC DISORDER
     Route: 030

REACTIONS (1)
  - Overdose [Recovered/Resolved]
